FAERS Safety Report 7237407-3 (Version None)
Quarter: 2011Q1

REPORT INFORMATION
  Report Type: 
  Country: None (occurrence: None)
  Receive Date: 20110121
  Receipt Date: 20110117
  Transmission Date: 20110831
  Serious: Yes (Other)
  Sender: FDA-Public Use
  Company Number: US-PFIZER INC-2009199565

PATIENT
  Sex: Female
  Weight: 83 kg

DRUGS (8)
  1. CHANTIX [Interacting]
     Dosage: UNK
     Dates: start: 20110101, end: 20110113
  2. TRAZODONE [Concomitant]
     Dosage: UNK
  3. METHADONE [Concomitant]
     Dosage: UNK
  4. CHANTIX [Interacting]
     Dosage: UNK
     Dates: start: 20110101
  5. CIPROFLOXACIN [Interacting]
     Dosage: UNK
  6. CLONAZEPAM [Concomitant]
     Dosage: UNK
  7. CHANTIX [Suspect]
     Indication: SMOKING CESSATION THERAPY
     Dosage: UNK
     Dates: start: 20090101
  8. SEROQUEL [Concomitant]
     Dosage: UNK

REACTIONS (4)
  - DRUG INTERACTION [None]
  - NAUSEA [None]
  - VOMITING [None]
  - MALAISE [None]
